FAERS Safety Report 8966540 (Version 4)
Quarter: 2020Q2

REPORT INFORMATION
  Report Type: Report from Study
  Country: CA (occurrence: CA)
  Receive Date: 20121215
  Receipt Date: 20200602
  Transmission Date: 20200714
  Serious: Yes (Hospitalization, Other)
  Sender: FDA-Public Use
  Company Number: CA-009507513-1212CAN005747

PATIENT
  Age: 70 Year
  Sex: Female
  Weight: 92.4 kg

DRUGS (7)
  1. LIPITOR [Suspect]
     Active Substance: ATORVASTATIN CALCIUM
     Indication: PRODUCT USED FOR UNKNOWN INDICATION
     Dosage: 80 MG, 1 EVERY 1 DAYS
     Route: 065
     Dates: start: 19980731
  2. ERLOTINIB HYDROCHLORIDE. [Suspect]
     Active Substance: ERLOTINIB HYDROCHLORIDE
     Indication: NON-SMALL CELL LUNG CANCER
     Dosage: 150 MILLIGRAM, 1 EVERY 1 DAYS
     Route: 048
     Dates: start: 20090306, end: 20090330
  3. ERLOTINIB HYDROCHLORIDE. [Suspect]
     Active Substance: ERLOTINIB HYDROCHLORIDE
     Indication: PRODUCT USED FOR UNKNOWN INDICATION
  4. NADOLOL. [Suspect]
     Active Substance: NADOLOL
     Indication: PRODUCT USED FOR UNKNOWN INDICATION
     Dosage: 40 MG, 1 EVERY 1 DAYS
     Route: 065
     Dates: start: 19980731
  5. NORVASC [Suspect]
     Active Substance: AMLODIPINE BESYLATE
     Indication: PRODUCT USED FOR UNKNOWN INDICATION
     Dosage: 5 MG, 1 EVERY 1 DAYS
     Route: 065
     Dates: start: 19980731
  6. ASPIRIN. [Suspect]
     Active Substance: ASPIRIN
     Indication: PRODUCT USED FOR UNKNOWN INDICATION
     Dosage: 325 MG, 1 EVERY 1 DAYS; DOSAGE FORM NOT SPECIFIED
     Route: 065
     Dates: start: 19980731
  7. HYZAAR [Suspect]
     Active Substance: HYDROCHLOROTHIAZIDE\LOSARTAN POTASSIUM
     Indication: PRODUCT USED FOR UNKNOWN INDICATION
     Dosage: 12.5 MG, 1 EVERY 1 DAYS
     Route: 065
     Dates: start: 19980731

REACTIONS (6)
  - Gastrointestinal haemorrhage [Recovered/Resolved]
  - Anaemia [Recovered/Resolved]
  - Diverticulum [Recovered/Resolved]
  - Colon adenoma [Recovered/Resolved]
  - Diverticulum intestinal [Recovered/Resolved]
  - Large intestine polyp [Recovered/Resolved]

NARRATIVE: CASE EVENT DATE: 20090317
